FAERS Safety Report 5212681-3 (Version None)
Quarter: 2007Q1

REPORT INFORMATION
  Report Type: 
  Country: None (occurrence: None)
  Receive Date: 20061107
  Receipt Date: 20060911
  Transmission Date: 20070707
  Serious: No
  Sender: FDA-Public Use
  Company Number: 200610553BWH

PATIENT
  Age: 65 Year
  Sex: Male

DRUGS (5)
  1. LEVITRA [Suspect]
     Indication: ERECTILE DYSFUNCTION
     Dosage: SEE IMAGE
     Route: 048
     Dates: start: 20060101
  2. LEVITRA [Suspect]
     Indication: ERECTILE DYSFUNCTION
     Dosage: SEE IMAGE
     Route: 048
     Dates: start: 20060101
  3. SOMA [Concomitant]
  4. GLIPIZIDE [Concomitant]
  5. CLONAZEPAM [Concomitant]

REACTIONS (3)
  - COLOUR BLINDNESS [None]
  - ERECTILE DYSFUNCTION [None]
  - VISION BLURRED [None]
